FAERS Safety Report 17682591 (Version 2)
Quarter: 2020Q2

REPORT INFORMATION
  Report Type: Spontaneous
  Country: GB (occurrence: GB)
  Receive Date: 20200418
  Receipt Date: 20200429
  Transmission Date: 20200714
  Serious: Yes (Hospitalization, Other)
  Sender: FDA-Public Use
  Company Number: GB-CANTON LABORATORIES, LLC-2082982

PATIENT
  Age: 36 Year
  Sex: Female

DRUGS (4)
  1. COCODAMOL [Suspect]
     Active Substance: ACETAMINOPHEN\CODEINE PHOSPHATE
     Route: 065
  2. CLOZARIL [Suspect]
     Active Substance: CLOZAPINE
     Route: 048
     Dates: start: 20190801, end: 202003
  3. NAPROSYN [Suspect]
     Active Substance: NAPROXEN
     Indication: PRODUCT USED FOR UNKNOWN INDICATION
     Route: 065
  4. NITROFURANTOIN. [Suspect]
     Active Substance: NITROFURANTOIN
     Route: 065

REACTIONS (11)
  - Vitamin D decreased [Unknown]
  - Mean cell volume decreased [Unknown]
  - White blood cell count decreased [Recovered/Resolved]
  - Kidney infection [Recovered/Resolved]
  - Haemoglobin decreased [Recovered/Resolved]
  - Lymphocyte count decreased [Unknown]
  - Mean cell haemoglobin decreased [Unknown]
  - Neutrophil count decreased [Recovered/Resolved]
  - Drug interaction [Unknown]
  - High density lipoprotein decreased [Unknown]
  - Blood lactate dehydrogenase increased [Unknown]

NARRATIVE: CASE EVENT DATE: 20200325
